FAERS Safety Report 7942331-4 (Version None)
Quarter: 2011Q4

REPORT INFORMATION
  Report Type: 
  Country: None (occurrence: None)
  Receive Date: 20111122
  Receipt Date: 20110628
  Transmission Date: 20120403
  Serious: No
  Sender: FDA-Public Use
  Company Number: PHHY2011US58737

PATIENT
  Age: 36 Year
  Sex: Male

DRUGS (1)
  1. GILENYA [Suspect]
     Indication: MULTIPLE SCLEROSIS
     Dosage: 0.5MG, QD, ORAL
     Route: 048
     Dates: start: 20110510

REACTIONS (3)
  - FEELING ABNORMAL [None]
  - ADVERSE EVENT [None]
  - DIZZINESS [None]
